FAERS Safety Report 21026593 (Version 1)
Quarter: 2022Q2

REPORT INFORMATION
  Report Type: Spontaneous
  Country: US (occurrence: US)
  Receive Date: 20220630
  Receipt Date: 20220630
  Transmission Date: 20220721
  Serious: No
  Sender: FDA-Public Use
  Company Number: US-SANOFI-01160902

PATIENT
  Age: 59 Year
  Sex: Male

DRUGS (1)
  1. LANTUS [Suspect]
     Active Substance: INSULIN GLARGINE
     Indication: Type 2 diabetes mellitus
     Dosage: DRUG STRUCTURE DOSAGE : 35 UNITS IN AM/ 25 UNITS IN PM

REACTIONS (2)
  - Inappropriate schedule of product administration [Unknown]
  - Product temperature excursion issue [Unknown]
